FAERS Safety Report 19398164 (Version 1)
Quarter: 2021Q2

REPORT INFORMATION
  Report Type: Spontaneous
  Country: JP (occurrence: JP)
  Receive Date: 20210610
  Receipt Date: 20210610
  Transmission Date: 20210717
  Serious: Yes (Other)
  Sender: FDA-Public Use
  Company Number: JP-ASPEN-GLO2021JP004637

PATIENT

DRUGS (2)
  1. NAFAMOSTAT [Concomitant]
     Active Substance: NAFAMOSTAT
     Indication: COVID-19 PNEUMONIA
     Dosage: UNK
     Route: 042
  2. DEXAMETHASONE. [Suspect]
     Active Substance: DEXAMETHASONE
     Indication: COVID-19 PNEUMONIA
     Dosage: UNK
     Route: 065

REACTIONS (2)
  - Off label use [Unknown]
  - Bronchopulmonary aspergillosis [Recovering/Resolving]
